FAERS Safety Report 26208094 (Version 1)
Quarter: 2025Q4

REPORT INFORMATION
  Report Type: Spontaneous
  Country: US (occurrence: None)
  Receive Date: 20251224
  Receipt Date: 20251224
  Transmission Date: 20260117
  Serious: Yes (Hospitalization)
  Sender: FDA-CTU
  Company Number: None

PATIENT
  Sex: Female
  Weight: 83.25 kg

DRUGS (3)
  1. WINREVAIR [Suspect]
     Active Substance: SOTATERCEPT-CSRK
     Indication: Pulmonary arterial hypertension
     Dosage: 1.1 ML EVERY 3 WEEKS SUBCUTANEOUS
     Route: 058
     Dates: start: 20240808
  2. OPSUMIT [Concomitant]
     Active Substance: MACITENTAN
  3. WINREVAIR [Concomitant]
     Active Substance: SOTATERCEPT-CSRK

REACTIONS (8)
  - Appendicitis [None]
  - Dyspnoea [None]
  - General physical health deterioration [None]
  - Decreased activity [None]
  - Affective disorder [None]
  - Headache [None]
  - Dizziness [None]
  - Fatigue [None]
